FAERS Safety Report 11633029 (Version 1)
Quarter: 2015Q4

REPORT INFORMATION
  Report Type: Spontaneous
  Country: FR (occurrence: FR)
  Receive Date: 20151015
  Receipt Date: 20151015
  Transmission Date: 20160304
  Serious: Yes (Hospitalization, Other)
  Sender: FDA-Public Use
  Company Number: FR-PFIZER INC-2015338594

PATIENT
  Age: 90 Year
  Sex: Female

DRUGS (4)
  1. MOVICOL [Concomitant]
     Active Substance: POLYETHYLENE GLYCOL 3350\POTASSIUM CHLORIDE\SODIUM BICARBONATE\SODIUM CHLORIDE
  2. FRAGMINE [Suspect]
     Active Substance: DALTEPARIN SODIUM
     Dosage: 5000 IU, 1X/DAY
     Route: 058
     Dates: start: 201503
  3. LAMALINE [Concomitant]
     Active Substance: ACETAMINOPHEN\CAFFEINE\OPIUM
  4. DOLIPRANE [Concomitant]
     Active Substance: ACETAMINOPHEN

REACTIONS (2)
  - Melaena [Recovered/Resolved]
  - Right ventricular failure [Unknown]

NARRATIVE: CASE EVENT DATE: 201509
